FAERS Safety Report 13526490 (Version 2)
Quarter: 2017Q2

REPORT INFORMATION
  Report Type: Spontaneous
  Country: US (occurrence: US)
  Receive Date: 20170509
  Receipt Date: 20170522
  Transmission Date: 20170830
  Serious: Yes (Death, Hospitalization, Other)
  Sender: FDA-Public Use
  Company Number: US-LUPIN PHARMACEUTICALS INC.-2017-02154

PATIENT
  Age: 90 Year
  Sex: Male
  Weight: 63.49 kg

DRUGS (1)
  1. CEFDINIR CAPSULES USP, 300 MG [Suspect]
     Active Substance: CEFDINIR
     Indication: ANTIBIOTIC THERAPY
     Dosage: 300 MG, BID
     Route: 048
     Dates: start: 20170211, end: 20170214

REACTIONS (2)
  - Blood urine present [Fatal]
  - Renal failure [Fatal]

NARRATIVE: CASE EVENT DATE: 20170216
